FAERS Safety Report 20108767 (Version 1)
Quarter: 2021Q4

REPORT INFORMATION
  Report Type: Spontaneous
  Country: US (occurrence: None)
  Receive Date: 20211124
  Receipt Date: 20211124
  Transmission Date: 20220303
  Serious: No
  Sender: FDA-Public Use
  Company Number: None

PATIENT
  Age: 60 Year
  Sex: Female

DRUGS (1)
  1. SOFOSBUVIR AND VELPATASVIR [Suspect]
     Active Substance: SOFOSBUVIR\VELPATASVIR
     Indication: Hepatitis C
     Dosage: FREQUENCY : DAILY;?
     Route: 048
     Dates: start: 202108

REACTIONS (6)
  - Therapy interrupted [None]
  - Post procedural complication [None]
  - Localised oedema [None]
  - Fatigue [None]
  - Decreased appetite [None]
  - Renal failure [None]

NARRATIVE: CASE EVENT DATE: 20211011
